FAERS Safety Report 8423003-9 (Version None)
Quarter: 2012Q2

REPORT INFORMATION
  Report Type: 
  Country: None (occurrence: None)
  Receive Date: 20120608
  Receipt Date: 20120531
  Transmission Date: 20120825
  Serious: Yes (Disabling, Other)
  Sender: FDA-Public Use
  Company Number: US-MILLENNIUM PHARMACEUTICALS, INC.-2012-03538

PATIENT

DRUGS (5)
  1. MUCAINE                            /00115701/ [Concomitant]
     Indication: PRODUCT USED FOR UNKNOWN INDICATION
     Dosage: UNK
  2. PROPARACAINE HYDROCHLORIDE [Concomitant]
     Dosage: UNK
  3. POVIDONE-IODINE (FORMULA 47) [Concomitant]
     Indication: PRODUCT USED FOR UNKNOWN INDICATION
     Dosage: UNK
  4. VELCADE [Suspect]
     Indication: PRODUCT USED FOR UNKNOWN INDICATION
  5. OFLOXACIN [Concomitant]
     Indication: PRODUCT USED FOR UNKNOWN INDICATION
     Route: 047

REACTIONS (4)
  - EYE INFLAMMATION [None]
  - OFF LABEL USE [None]
  - WRONG DRUG ADMINISTERED [None]
  - BLINDNESS UNILATERAL [None]
